FAERS Safety Report 6217320-0 (Version None)
Quarter: 2009Q2

REPORT INFORMATION
  Report Type: 
  Country: None (occurrence: None)
  Receive Date: 20090608
  Receipt Date: 20090603
  Transmission Date: 20091009
  Serious: Yes (Hospitalization)
  Sender: FDA-Public Use
  Company Number: US-PFIZER INC-2009200102

PATIENT
  Sex: Male
  Weight: 144.67 kg

DRUGS (16)
  1. NAPROXEN [Suspect]
     Indication: ARTHRITIS
     Dosage: UNK
     Route: 048
     Dates: start: 20090326, end: 20090409
  2. BLINDED *PLACEBO [Suspect]
     Indication: ARTHRITIS
     Dosage: UNK
     Route: 048
     Dates: start: 20090326, end: 20090409
  3. BLINDED CELECOXIB [Suspect]
     Indication: ARTHRITIS
     Dosage: UNK
     Route: 048
     Dates: start: 20090326, end: 20090409
  4. IBUPROFEN [Suspect]
     Indication: ARTHRITIS
     Dosage: UNK
     Route: 048
     Dates: start: 20090326, end: 20090409
  5. NAPROXEN [Suspect]
     Dosage: UNK
     Route: 048
     Dates: start: 20090326, end: 20090409
  6. NEXIUM [Concomitant]
     Dosage: 40 MG, 1X/DAY
     Route: 048
     Dates: start: 20090326, end: 20090409
  7. HUMALOG [Concomitant]
     Dosage: 70/30
     Route: 058
     Dates: start: 20081020
  8. METFORMIN [Concomitant]
     Dosage: UNK
     Route: 048
     Dates: start: 20081020
  9. GLYBURIDE [Concomitant]
     Dosage: UNK
     Route: 048
     Dates: start: 20080929
  10. LISINOPRIL [Concomitant]
     Dosage: UNK
     Route: 048
     Dates: start: 20080929
  11. ZOLOFT [Concomitant]
     Dosage: UNK
     Route: 048
     Dates: start: 20081020
  12. TRAZODONE [Concomitant]
     Dosage: UNK
     Route: 048
     Dates: start: 20081020
  13. SIMVASTATIN [Concomitant]
     Dosage: UNK
     Route: 048
     Dates: start: 20080929
  14. ADVAIR HFA [Concomitant]
     Dosage: UNK
     Route: 055
     Dates: start: 20081020
  15. VICODIN ES [Concomitant]
     Dosage: UNK
     Route: 048
     Dates: start: 20081108
  16. TAMSULOSIN [Concomitant]
     Dosage: UNK
     Route: 048
     Dates: start: 20090312

REACTIONS (1)
  - ATRIAL FIBRILLATION [None]
